FAERS Safety Report 23963115 (Version 1)
Quarter: 2024Q2

REPORT INFORMATION
  Report Type: Spontaneous
  Country: US (occurrence: US)
  Receive Date: 20240611
  Receipt Date: 20240611
  Transmission Date: 20240716
  Serious: No
  Sender: FDA-Public Use
  Company Number: US-VERTEX PHARMACEUTICALS-2024-009532

PATIENT

DRUGS (2)
  1. TRIKAFTA [Suspect]
     Active Substance: ELEXACAFTOR\IVACAFTOR\TEZACAFTOR
     Indication: Cystic fibrosis
     Dosage: UNKNOWN DOSAGE REGIMEN
     Route: 048
  2. TRIKAFTA [Suspect]
     Active Substance: ELEXACAFTOR\IVACAFTOR\TEZACAFTOR
     Dosage: LOWERED DOSE (1 TRIKAFTA AND 1 KALYDECO IN THE EVENING)
     Route: 048
     Dates: start: 2024

REACTIONS (3)
  - Dissociation [Recovering/Resolving]
  - Mental disorder [Recovering/Resolving]
  - Personality change [Recovering/Resolving]

NARRATIVE: CASE EVENT DATE: 20240101
